FAERS Safety Report 8480217-X (Version None)
Quarter: 2012Q2

REPORT INFORMATION
  Report Type: 
  Country: None (occurrence: None)
  Receive Date: 20120629
  Receipt Date: 20120615
  Transmission Date: 20120825
  Serious: Yes (Other)
  Sender: FDA-Public Use
  Company Number: CHPA2012US013104

PATIENT
  Age: 47 Year
  Sex: Female

DRUGS (5)
  1. IBUPROFEN (ADVIL) [Concomitant]
     Dosage: UNK, UNK
  2. XANAX [Concomitant]
     Indication: FEELING OF RELAXATION
     Dosage: 1 BEFORE SURGERY
     Dates: start: 20000101, end: 20000101
  3. EXCEDRIN EXTRA STRENGTH TABLETS [Suspect]
     Dosage: 1 OR 2 DF, ONCE OR TWICE A WEEK
     Route: 048
     Dates: start: 19670101
  4. EXCEDRIN EXTRA STRENGTH TABLETS [Suspect]
     Indication: TENSION HEADACHE
     Dosage: 1 OR 2 DF, ONCE OR TWICE A WEEK
     Route: 048
     Dates: start: 19670101
  5. EXCEDRIN EXTRA STRENGTH TABLETS [Suspect]
     Dosage: 1 OR 2 DF, ONCE OR TWICE A WEEK
     Route: 048
     Dates: start: 19670101

REACTIONS (11)
  - ANGIOPATHY [None]
  - FUNGAL INFECTION [None]
  - URTICARIA [None]
  - INCORRECT DOSE ADMINISTERED [None]
  - UPPER RESPIRATORY TRACT INFECTION [None]
  - HYPERTENSION [None]
  - MIGRAINE [None]
  - MYALGIA [None]
  - UNDERDOSE [None]
  - URTICARIA CHRONIC [None]
  - OVERDOSE [None]
